FAERS Safety Report 10862953 (Version 1)
Quarter: 2015Q1

REPORT INFORMATION
  Report Type: Spontaneous
  Country: IT (occurrence: None)
  Receive Date: 20150219
  Receipt Date: 20150219
  Transmission Date: 20150721
  Serious: Yes (Life-Threatening, Hospitalization)
  Sender: FDA-Public Use
  Company Number: 2015/009

PATIENT

DRUGS (1)
  1. VALPROIC ACID (NO PREF. NAME) [Suspect]
     Active Substance: VALPROIC ACID

REACTIONS (2)
  - Arrhythmia [None]
  - Toxicity to various agents [None]
